FAERS Safety Report 5119258-9 (Version None)
Quarter: 2006Q3

REPORT INFORMATION
  Report Type: 
  Country: None (occurrence: None)
  Receive Date: 20060929
  Receipt Date: 20060924
  Transmission Date: 20061208
  Serious: Yes (Hospitalization, Other)
  Sender: FDA-Public Use
  Company Number: TPA2006A01627

PATIENT
  Age: 26 Year
  Sex: Female
  Weight: 127.9144 kg

DRUGS (5)
  1. ROZEREM [Suspect]
     Indication: INSOMNIA
     Dosage: 8 MG, HS, PER ORAL
     Route: 048
     Dates: start: 20060801, end: 20060101
  2. ZOLOFT [Suspect]
     Indication: DEPRESSION
     Dosage: 200 MG, 1 IN 1 D, PER ORAL
     Route: 048
     Dates: end: 20060101
  3. YASMIN 28 (ETHINYLESTRADIOL, DROSPIRENONE) (TABLETS) [Concomitant]
  4. INDERAL LA [Concomitant]
  5. KLONOPIN (CLONAZEPAM) (2 MILLIGRAM) [Concomitant]

REACTIONS (18)
  - ABDOMINAL PAIN UPPER [None]
  - ANAEMIA [None]
  - BLOOD PROLACTIN INCREASED [None]
  - BREAST ENLARGEMENT [None]
  - CARBON DIOXIDE DECREASED [None]
  - CHEST PAIN [None]
  - CONDITION AGGRAVATED [None]
  - CYSTITIS [None]
  - DEPRESSION [None]
  - DRUG INEFFECTIVE [None]
  - DYSPNOEA [None]
  - ENDODONTIC PROCEDURE [None]
  - GALACTORRHOEA [None]
  - LARYNGITIS [None]
  - PANIC ATTACK [None]
  - SINUSITIS [None]
  - SUICIDE ATTEMPT [None]
  - TREMOR [None]
